FAERS Safety Report 11656630 (Version 2)
Quarter: 2015Q4

REPORT INFORMATION
  Report Type: Spontaneous
  Country: US (occurrence: US)
  Receive Date: 20151023
  Receipt Date: 20151026
  Transmission Date: 20160304
  Serious: Yes (Hospitalization)
  Sender: FDA-Public Use
  Company Number: US-FRESENIUS KABI-FK201505278

PATIENT
  Age: 67 Year
  Sex: Male
  Weight: 71 kg

DRUGS (20)
  1. IMODIUM [Concomitant]
     Active Substance: LOPERAMIDE HYDROCHLORIDE
     Dates: start: 20150507, end: 20150514
  2. HYDROMORPHONE [Concomitant]
     Active Substance: HYDROMORPHONE
  3. OPIUM. [Concomitant]
     Active Substance: OPIUM
  4. GEMCITABINE [Suspect]
     Active Substance: GEMCITABINE\GEMCITABINE HYDROCHLORIDE
     Indication: PANCREATIC CARCINOMA
     Route: 042
     Dates: start: 20140423
  5. ENZALUTAMIDE [Suspect]
     Active Substance: ENZALUTAMIDE
     Indication: PANCREATIC CARCINOMA
     Route: 048
     Dates: start: 20150423, end: 20150511
  6. DIPHENOXYLATE HYDROCHLORIDE [Concomitant]
     Active Substance: DIPHENOXYLATE HYDROCHLORIDE
     Dates: start: 20150507, end: 20150514
  7. CEFEPIME [Concomitant]
     Active Substance: CEFEPIME HYDROCHLORIDE
     Route: 042
  8. PANCRELIPASE. [Concomitant]
     Active Substance: PANCRELIPASE
  9. PACLITAXEL ALBUMIN [Suspect]
     Active Substance: PACLITAXEL
     Indication: PANCREATIC CARCINOMA
     Route: 042
     Dates: start: 20140423
  10. ATROPINE SULFATE. [Concomitant]
     Active Substance: ATROPINE SULFATE
     Dates: start: 20150507, end: 20150514
  11. ENZALUTAMIDE [Suspect]
     Active Substance: ENZALUTAMIDE
     Route: 048
     Dates: start: 20150528
  12. CIPROFLOXACIN. [Concomitant]
     Active Substance: CIPROFLOXACIN
     Route: 048
  13. LEVOTHYROXIN [Concomitant]
     Active Substance: LEVOTHYROXINE
  14. LORATADINE. [Concomitant]
     Active Substance: LORATADINE
  15. SODIUM CHLORIDE. [Concomitant]
     Active Substance: SODIUM CHLORIDE
  16. ONDANSETRON [Concomitant]
     Active Substance: ONDANSETRON
  17. ENZALUTAMIDE [Suspect]
     Active Substance: ENZALUTAMIDE
     Route: 048
     Dates: start: 20150515, end: 20150521
  18. PEGFILGRASTIM [Concomitant]
     Active Substance: PEGFILGRASTIM
  19. RANITIDINE [Concomitant]
     Active Substance: RANITIDINE\RANITIDINE HYDROCHLORIDE
  20. TAMSULOSIN [Concomitant]
     Active Substance: TAMSULOSIN

REACTIONS (1)
  - Diarrhoea [Recovered/Resolved]

NARRATIVE: CASE EVENT DATE: 20150509
